FAERS Safety Report 6663662-4 (Version None)
Quarter: 2010Q2

REPORT INFORMATION
  Report Type: 
  Country: None (occurrence: None)
  Receive Date: 20100401
  Receipt Date: 20100324
  Transmission Date: 20101027
  Serious: Yes (Hospitalization)
  Sender: FDA-Public Use
  Company Number: GB-JNJCH-2010007603

PATIENT
  Age: 32 Year
  Sex: Female
  Weight: 64.86 kg

DRUGS (3)
  1. NICOTINE [Suspect]
     Indication: SMOKING CESSATION THERAPY
     Dosage: TEXT:UNKNOWN
     Route: 062
  2. NICORETTE NASAL SPRAY [Suspect]
     Indication: SMOKING CESSATION THERAPY
     Dosage: TEXT:UNKNOWN
     Route: 045
     Dates: start: 20100218, end: 20100219
  3. ALCOHOL [Suspect]
     Indication: DRUG USE FOR UNKNOWN INDICATION
     Dosage: TEXT:UNKNOWN
     Route: 048

REACTIONS (1)
  - LOSS OF CONSCIOUSNESS [None]
